FAERS Safety Report 12547323 (Version 2)
Quarter: 2017Q1

REPORT INFORMATION
  Report Type: Spontaneous
  Country: US (occurrence: US)
  Receive Date: 20160711
  Receipt Date: 20170119
  Transmission Date: 20170428
  Serious: No
  Sender: FDA-Public Use
  Company Number: US-EGALET US INC-US-2016EGA000108

PATIENT

DRUGS (2)
  1. MAXALT [Concomitant]
     Active Substance: RIZATRIPTAN BENZOATE
     Indication: MIGRAINE
     Dosage: UNK DF, UNK
  2. SPRIX [Suspect]
     Active Substance: KETOROLAC TROMETHAMINE
     Indication: MIGRAINE
     Dosage: 1 SPRAY IN EACH NOSTRIL DAILY AS NEEDED
     Route: 045

REACTIONS (2)
  - Product use issue [Unknown]
  - Underdose [Unknown]
